FAERS Safety Report 14715137 (Version 1)
Quarter: 2018Q2

REPORT INFORMATION
  Report Type: Spontaneous
  Country: US (occurrence: US)
  Receive Date: 20180404
  Receipt Date: 20180404
  Transmission Date: 20180711
  Serious: Yes (Other)
  Sender: FDA-Public Use
  Company Number: US-BAYER-2018-064354

PATIENT
  Age: 81 Year
  Sex: Male

DRUGS (3)
  1. ACETYLSALICYLIC ACID (} 100 MG) [Suspect]
     Active Substance: ASPIRIN
  2. TICAGRELOR. [Suspect]
     Active Substance: TICAGRELOR
  3. TIROFIBAN [Suspect]
     Active Substance: TIROFIBAN
     Indication: THROMBOSIS
     Dosage: 25 MCG/KG BOLUS; 50MCG/ML BAG CONCENTRATION

REACTIONS (4)
  - Labelled drug-drug interaction medication error [None]
  - Vascular access site haemorrhage [None]
  - Drug administration error [None]
  - Haemoglobin decreased [None]
